FAERS Safety Report 9308375 (Version 2)
Quarter: 2013Q2

REPORT INFORMATION
  Report Type: Spontaneous
  Country: BR (occurrence: BR)
  Receive Date: 20130524
  Receipt Date: 20130612
  Transmission Date: 20140414
  Serious: Yes (Other)
  Sender: FDA-Public Use
  Company Number: BR-GLAXOSMITHKLINE-B0894181A

PATIENT
  Age: 76 Year
  Sex: Female
  Weight: 60 kg

DRUGS (2)
  1. RYTMONORM [Suspect]
     Indication: ARRHYTHMIA
     Dosage: 300MG TWICE PER DAY
     Route: 048
     Dates: start: 1982
  2. UNKNOWN MEDICATION [Concomitant]
     Indication: PAIN

REACTIONS (8)
  - Cataract [Recovered/Resolved]
  - Weight decreased [Unknown]
  - Arrhythmia [Unknown]
  - Blood pressure increased [Recovered/Resolved]
  - Hypothyroidism [Recovered/Resolved]
  - Blood cholesterol increased [Recovered/Resolved]
  - Back pain [Recovered/Resolved]
  - Bone disorder [Unknown]
